FAERS Safety Report 24160468 (Version 1)
Quarter: 2024Q3

REPORT INFORMATION
  Report Type: Report from Study
  Country: FR (occurrence: FR)
  Receive Date: 20240801
  Receipt Date: 20240801
  Transmission Date: 20241017
  Serious: Yes (Death)
  Sender: AMGEN
  Company Number: FR-AMGEN-FRANI2024150767

PATIENT
  Age: 58 Year
  Sex: Male

DRUGS (9)
  1. TRASTUZUMAB [Suspect]
     Active Substance: TRASTUZUMAB
     Indication: HER2 positive breast cancer
     Dosage: 8 MILLIGRAM/KILOGRAM, ONE TIME DOSE (SINGLE)
     Route: 042
  2. TRASTUZUMAB [Suspect]
     Active Substance: TRASTUZUMAB
     Dosage: 600 MILLIGRAM, Q3WK
     Route: 058
     Dates: start: 20210115
  3. CAPECITABINE [Suspect]
     Active Substance: CAPECITABINE
     Indication: HER2 positive breast cancer
     Dosage: 1000 MILLIGRAM/SQ. METER, BID
     Route: 048
     Dates: start: 20210115
  4. TUCATINIB [Suspect]
     Active Substance: TUCATINIB
     Indication: HER2 positive breast cancer
     Dosage: 300 MILLIGRAM, BID
     Route: 048
     Dates: start: 20210115
  5. PREGABALIN [Concomitant]
     Active Substance: PREGABALIN
     Dosage: 100 MILLIGRAM, TID
  6. OXYCODONE [Concomitant]
     Active Substance: OXYCODONE
     Dosage: 40 MILLIGRAM, BID
  7. POTASSIUM CHLORIDE [Concomitant]
     Active Substance: POTASSIUM CHLORIDE
     Dosage: 600 MILLIGRAM, QD
  8. OXYCODONE HYDROCHLORIDE [Concomitant]
     Active Substance: OXYCODONE HYDROCHLORIDE
     Dosage: 10 MILLIGRAM, Q4H
  9. GABAPENTIN [Concomitant]
     Active Substance: GABAPENTIN
     Dosage: 300 MILLIGRAM, QID

REACTIONS (2)
  - Neurological decompensation [Fatal]
  - Underdose [Unknown]

NARRATIVE: CASE EVENT DATE: 20210301
